FAERS Safety Report 13639219 (Version 1)
Quarter: 2017Q2

REPORT INFORMATION
  Report Type: Spontaneous
  Country: US (occurrence: US)
  Receive Date: 20170609
  Receipt Date: 20170609
  Transmission Date: 20170830
  Serious: Yes (Hospitalization)
  Sender: FDA-Public Use
  Company Number: US-ROCHE-667638

PATIENT
  Age: 51 Year
  Sex: Female

DRUGS (2)
  1. CLONAZEPAM. [Suspect]
     Active Substance: CLONAZEPAM
     Indication: COMPLEX REGIONAL PAIN SYNDROME
     Dosage: DRUG: GENERIC CLONAZEPAM (GREEN TABLETS)
     Route: 065
  2. KLONOPIN [Suspect]
     Active Substance: CLONAZEPAM
     Indication: COMPLEX REGIONAL PAIN SYNDROME
     Route: 065

REACTIONS (4)
  - Dyspnoea [Unknown]
  - Erythema [Unknown]
  - Throat tightness [Unknown]
  - Back injury [Unknown]

NARRATIVE: CASE EVENT DATE: 200810
